FAERS Safety Report 21097053 (Version 17)
Quarter: 2024Q4

REPORT INFORMATION
  Report Type: Spontaneous
  Country: CA (occurrence: CA)
  Receive Date: 20220719
  Receipt Date: 20241014
  Transmission Date: 20250114
  Serious: Yes (Other)
  Sender: CELLTRION
  Company Number: CA-CELLTRION INC.-2022CA008010

PATIENT

DRUGS (15)
  1. INFLECTRA [Suspect]
     Active Substance: INFLIXIMAB-DYYB
     Indication: Colitis ulcerative
     Dosage: 600 MG, EVERY 4 WEEKS
     Route: 042
     Dates: start: 20220513, end: 2023
  2. INFLECTRA [Suspect]
     Active Substance: INFLIXIMAB-DYYB
     Dosage: 600 MG, EVERY 4 WEEKS
     Route: 042
     Dates: start: 20220609
  3. INFLECTRA [Suspect]
     Active Substance: INFLIXIMAB-DYYB
     Dosage: 600 MG, EVERY 4 WEEKS
     Route: 042
     Dates: start: 20220708
  4. INFLECTRA [Suspect]
     Active Substance: INFLIXIMAB-DYYB
     Dosage: 600 MG, EVERY 4 WEEKS
     Route: 042
     Dates: start: 20220805
  5. INFLECTRA [Suspect]
     Active Substance: INFLIXIMAB-DYYB
     Dosage: 600 MG, EVERY 4 WEEKS
     Route: 042
     Dates: start: 20220902
  6. INFLECTRA [Suspect]
     Active Substance: INFLIXIMAB-DYYB
     Dosage: 600 MG, AFTER 7 WEEKS AND 5 DAYS (PRESCRIBED EVERY 4 WEEKS)
     Route: 042
     Dates: start: 20221026
  7. INFLECTRA [Suspect]
     Active Substance: INFLIXIMAB-DYYB
     Dosage: 5 MG/KG, EVERY 4 WEEK
     Route: 042
     Dates: start: 2023
  8. INFLECTRA [Suspect]
     Active Substance: INFLIXIMAB-DYYB
     Dosage: 600 MG, EVERY 4 WEEKS
     Route: 042
     Dates: start: 20230613
  9. INFLECTRA [Suspect]
     Active Substance: INFLIXIMAB-DYYB
     Dosage: 600 MG, EVERY 4 WEEKS
     Route: 042
     Dates: start: 20230710
  10. INFLECTRA [Suspect]
     Active Substance: INFLIXIMAB-DYYB
     Dosage: 5 MG/KG, EVERY 4 WEEKS
     Route: 042
  11. INFLECTRA [Suspect]
     Active Substance: INFLIXIMAB-DYYB
     Dosage: 5 MG/KG, EVERY 4 WEEKS
     Route: 042
  12. INFLECTRA [Suspect]
     Active Substance: INFLIXIMAB-DYYB
     Dosage: 5 MG/KG, EVERY 4 WEEKS
     Route: 042
     Dates: start: 20240617
  13. INFLECTRA [Suspect]
     Active Substance: INFLIXIMAB-DYYB
     Dosage: 7.5 MG/KG (7500UG/KG), EVERY 4 WEEKS
     Route: 042
     Dates: start: 20240715
  14. INFLECTRA [Suspect]
     Active Substance: INFLIXIMAB-DYYB
     Dosage: 7.5 MG/KG, EVERY 4 WEEKS
     Route: 042
  15. INFLECTRA [Suspect]
     Active Substance: INFLIXIMAB-DYYB
     Dosage: 7.5 MG/KG, EVERY 4 WEEKS
     Route: 042

REACTIONS (24)
  - Abdominal pain lower [Not Recovered/Not Resolved]
  - Weight decreased [Recovered/Resolved]
  - Drug level decreased [Not Recovered/Not Resolved]
  - Drug level increased [Unknown]
  - Urinary tract infection [Not Recovered/Not Resolved]
  - COVID-19 [Recovered/Resolved]
  - Back pain [Not Recovered/Not Resolved]
  - Constipation [Not Recovered/Not Resolved]
  - Vaginitis gardnerella [Unknown]
  - Muscle spasms [Unknown]
  - Drug ineffective [Unknown]
  - Fatigue [Not Recovered/Not Resolved]
  - Condition aggravated [Recovering/Resolving]
  - Peripheral swelling [Not Recovered/Not Resolved]
  - Pain in extremity [Not Recovered/Not Resolved]
  - Joint stiffness [Not Recovered/Not Resolved]
  - Arthralgia [Recovering/Resolving]
  - Pain [Not Recovered/Not Resolved]
  - Cough [Not Recovered/Not Resolved]
  - Off label use [Unknown]
  - Off label use [Unknown]
  - Off label use [Unknown]
  - Intentional product use issue [Unknown]
  - Inappropriate schedule of product administration [Unknown]

NARRATIVE: CASE EVENT DATE: 20220513
